FAERS Safety Report 9581477 (Version 1)
Quarter: 2013Q4

REPORT INFORMATION
  Report Type: Report from Study
  Country: US (occurrence: US)
  Receive Date: 20131002
  Receipt Date: 20131002
  Transmission Date: 20140711
  Serious: Yes (Other)
  Sender: FDA-Public Use
  Company Number: PHEH2013US020382

PATIENT
  Sex: Male

DRUGS (4)
  1. ZOMETA [Suspect]
     Indication: PROSTATE CANCER
     Dosage: 4 MG, MONTHLY
     Route: 042
     Dates: start: 2012
  2. ZOMETA [Suspect]
     Indication: BONE CANCER
  3. LUPRON [Concomitant]
  4. MCR [Concomitant]

REACTIONS (1)
  - Spinal cord compression [Recovering/Resolving]
